FAERS Safety Report 6867224-5 (Version None)
Quarter: 2010Q3

REPORT INFORMATION
  Report Type: 
  Country: None (occurrence: None)
  Receive Date: 20100722
  Receipt Date: 20100715
  Transmission Date: 20110219
  Serious: Yes (Hospitalization)
  Sender: FDA-Public Use
  Company Number: B0666459A

PATIENT
  Age: 33 Year
  Sex: Female

DRUGS (4)
  1. SEREUPIN [Suspect]
     Indication: PRODUCT USED FOR UNKNOWN INDICATION
     Dosage: 560MG PER DAY
     Route: 065
     Dates: start: 20100507, end: 20100507
  2. DENIBAN [Suspect]
     Indication: PRODUCT USED FOR UNKNOWN INDICATION
     Dosage: 600MG PER DAY
     Route: 065
     Dates: start: 20100507, end: 20100507
  3. ELOPRAM [Suspect]
     Indication: PRODUCT USED FOR UNKNOWN INDICATION
     Dosage: 560MG PER DAY
     Route: 065
     Dates: start: 20100507, end: 20100507
  4. ORAP [Suspect]
     Indication: PRODUCT USED FOR UNKNOWN INDICATION
     Dosage: 112MG PER DAY
     Route: 065
     Dates: start: 20100507, end: 20100507

REACTIONS (2)
  - OVERDOSE [None]
  - SELF INJURIOUS BEHAVIOUR [None]
